FAERS Safety Report 23906503 (Version 1)
Quarter: 2024Q2

REPORT INFORMATION
  Report Type: Spontaneous
  Country: JP (occurrence: JP)
  Receive Date: 20240528
  Receipt Date: 20240528
  Transmission Date: 20240715
  Serious: Yes (Death)
  Sender: FDA-Public Use
  Company Number: JP-CARNEGIE-000008

PATIENT
  Age: 80 Year
  Sex: Female

DRUGS (1)
  1. LETROZOLE [Suspect]
     Active Substance: LETROZOLE
     Indication: Invasive ductal breast carcinoma
     Route: 065

REACTIONS (7)
  - Tumour lysis syndrome [Fatal]
  - Respiratory distress [Fatal]
  - Renal impairment [Fatal]
  - Disease progression [Fatal]
  - Hepatic failure [Fatal]
  - Cytokine storm [Fatal]
  - Disseminated intravascular coagulation [Fatal]
